FAERS Safety Report 14148515 (Version 2)
Quarter: 2018Q2

REPORT INFORMATION
  Report Type: Spontaneous
  Country: US (occurrence: US)
  Receive Date: 20171101
  Receipt Date: 20180412
  Transmission Date: 20180711
  Serious: Yes (Life-Threatening, Hospitalization, Other)
  Sender: FDA-Public Use
  Company Number: US-TORRENT-00003517

PATIENT
  Age: 13 Year
  Sex: Female
  Weight: 59 kg

DRUGS (5)
  1. NAPROXEN. [Suspect]
     Active Substance: NAPROXEN
     Indication: PRODUCT USED FOR UNKNOWN INDICATION
     Dosage: UNKNOWN
  2. CITALOPRAM [Suspect]
     Active Substance: CITALOPRAM HYDROBROMIDE
     Indication: PRODUCT USED FOR UNKNOWN INDICATION
     Dosage: UNKNOWN
  3. BUPROPION HYDROCHLORIDE. [Suspect]
     Active Substance: BUPROPION HYDROCHLORIDE
     Indication: PRODUCT USED FOR UNKNOWN INDICATION
     Dosage: UNKNOWN
  4. ACETAMINOPHEN PM [Suspect]
     Active Substance: ACETAMINOPHEN\DIPHENHYDRAMINE HYDROCHLORIDE
     Indication: PRODUCT USED FOR UNKNOWN INDICATION
     Dosage: UNKNOWN
  5. DIPHENHYDRAMINE. [Suspect]
     Active Substance: DIPHENHYDRAMINE
     Indication: PRODUCT USED FOR UNKNOWN INDICATION
     Dosage: UNKNOWN

REACTIONS (23)
  - Overdose [Unknown]
  - Dry skin [Unknown]
  - Hypertension [Unknown]
  - Tachypnoea [Unknown]
  - Muscle rigidity [Unknown]
  - Agitation [Recovering/Resolving]
  - Electrocardiogram QT prolonged [Unknown]
  - Urinary retention [Unknown]
  - Hallucination [Recovered/Resolved]
  - Suicide attempt [Unknown]
  - Anxiety [Unknown]
  - Disorientation [Unknown]
  - Toxicity to various agents [Unknown]
  - Mucosal dryness [Unknown]
  - Hyperthermia [Recovered/Resolved]
  - Myoclonus [Unknown]
  - Mydriasis [Unknown]
  - Flushing [Recovering/Resolving]
  - Gastrointestinal sounds abnormal [Unknown]
  - Hypohidrosis [Recovered/Resolved]
  - Tremor [Recovered/Resolved]
  - Dermatillomania [Unknown]
  - Tachycardia [Unknown]
